FAERS Safety Report 10037589 (Version 1)
Quarter: 2014Q1

REPORT INFORMATION
  Report Type: Spontaneous
  Country: LB (occurrence: LB)
  Receive Date: 20140326
  Receipt Date: 20140326
  Transmission Date: 20141002
  Serious: Yes (Other)
  Sender: FDA-Public Use
  Company Number: LB-EISAI INC-E3810-06959-SPO-LB

PATIENT
  Age: 51 Year
  Sex: Male

DRUGS (1)
  1. PARIET (RABEPRAZOLE) [Suspect]
     Indication: GASTROENTERITIS
     Route: 048

REACTIONS (1)
  - Blood pressure increased [Recovered/Resolved]
